FAERS Safety Report 5839977-6 (Version None)
Quarter: 2008Q3

REPORT INFORMATION
  Report Type: 
  Country: None (occurrence: None)
  Receive Date: 20080807
  Receipt Date: 20080807
  Transmission Date: 20090109
  Serious: Yes (Other)
  Sender: FDA-Public Use
  Company Number: None

PATIENT
  Age: 74 Year
  Sex: Female
  Weight: 59.8748 kg

DRUGS (1)
  1. FOSAMAX [Suspect]
     Indication: OSTEOPOROSIS
     Dosage: 70MG 1/WEEK ORAL
     Route: 048
     Dates: end: 20070428

REACTIONS (4)
  - FALL [None]
  - PAIN [None]
  - SKELETAL INJURY [None]
  - SYNCOPE [None]
